FAERS Safety Report 7793354-X (Version None)
Quarter: 2011Q4

REPORT INFORMATION
  Report Type: 
  Country: None (occurrence: None)
  Receive Date: 20111003
  Receipt Date: 20110921
  Transmission Date: 20120403
  Serious: Yes (Hospitalization, Other)
  Sender: FDA-Public Use
  Company Number: US-BAYER-201029529NA

PATIENT
  Age: 43 Year
  Sex: Female
  Weight: 81.633 kg

DRUGS (11)
  1. YASMIN [Suspect]
     Dosage: UNK
     Route: 048
     Dates: start: 20030101, end: 20070101
  2. YASMIN [Suspect]
     Dosage: UNK
     Dates: start: 20070101, end: 20090101
  3. DROSPIRENONE AND ETHINYL ESTRADIOL [Suspect]
     Dosage: UNK
     Dates: start: 20070101, end: 20090101
  4. NABUTON [Concomitant]
  5. VYTORIN [Concomitant]
  6. ALTACE [Concomitant]
     Dosage: UNK
     Dates: start: 20060101
  7. PROTONIX [Concomitant]
  8. NSAID'S [Concomitant]
  9. LISINOPRIL [Concomitant]
     Dosage: UNK
     Dates: start: 20060101
  10. LIPITOR [Concomitant]
     Dosage: UNK
     Dates: start: 20060101
  11. MELOXICAM [Concomitant]

REACTIONS (4)
  - CHOLELITHIASIS [None]
  - EMOTIONAL DISTRESS [None]
  - CHOLECYSTITIS CHRONIC [None]
  - GALLBLADDER DISORDER [None]
